FAERS Safety Report 13588398 (Version 1)
Quarter: 2017Q2

REPORT INFORMATION
  Report Type: Report from Study
  Country: IT (occurrence: IT)
  Receive Date: 20170529
  Receipt Date: 20170529
  Transmission Date: 20170830
  Serious: Yes (Hospitalization, Other)
  Sender: FDA-Public Use
  Company Number: IT-GLAXOSMITHKLINE-IT2017073094

PATIENT
  Age: 37 Year
  Sex: Female
  Weight: 57 kg

DRUGS (9)
  1. BLINDED RITUXIMAB [Suspect]
     Active Substance: RITUXIMAB
     Dosage: UNK
     Dates: start: 20170302
  2. BLINDED BELIMUMAB [Suspect]
     Active Substance: BELIMUMAB
     Dosage: UNK
     Dates: start: 20170302
  3. BLINDED BELIMUMAB [Suspect]
     Active Substance: BELIMUMAB
     Dosage: UNK
     Dates: start: 20170302
  4. BLINDED RITUXIMAB [Suspect]
     Active Substance: RITUXIMAB
     Dosage: UNK
     Dates: start: 20170302
  5. BLINDED PLACEBO [Suspect]
     Active Substance: INVESTIGATIONAL PRODUCT
     Dosage: UNK
     Dates: start: 20170302
  6. BLINDED PLACEBO [Suspect]
     Active Substance: INVESTIGATIONAL PRODUCT
     Dosage: UNK
     Dates: start: 20170302
  7. BLINDED PLACEBO [Suspect]
     Active Substance: INVESTIGATIONAL PRODUCT
     Dosage: UNK
     Dates: start: 20170302
  8. BLINDED BELIMUMAB [Suspect]
     Active Substance: BELIMUMAB
     Dosage: UNK
     Dates: start: 20170302
  9. BLINDED RITUXIMAB [Suspect]
     Active Substance: RITUXIMAB
     Dosage: UNK
     Dates: start: 20170302

REACTIONS (2)
  - Rash [Recovering/Resolving]
  - Neutropenia [Recovering/Resolving]

NARRATIVE: CASE EVENT DATE: 20170512
